FAERS Safety Report 22291352 (Version 2)
Quarter: 2023Q2

REPORT INFORMATION
  Report Type: Spontaneous
  Country: DE (occurrence: DE)
  Receive Date: 20230506
  Receipt Date: 20230519
  Transmission Date: 20230721
  Serious: Yes (Other)
  Sender: FDA-Public Use
  Company Number: DE-TEVA-2023-DE-2882549

PATIENT
  Age: 41 Year
  Sex: Male

DRUGS (1)
  1. EMTRICITABINE\TENOFOVIR DISOPROXIL [Suspect]
     Active Substance: EMTRICITABINE\TENOFOVIR DISOPROXIL
     Indication: Product used for unknown indication
     Dosage: FORM STRENGTH: 200 MG/245 MG, DAILY INTAKE: 1 TABLET CRUSHED WITH WATER, FOR PREP
     Route: 065
     Dates: start: 202301, end: 2023

REACTIONS (5)
  - Swollen tongue [Not Recovered/Not Resolved]
  - Mycoplasma infection [Unknown]
  - Oropharyngeal pain [Unknown]
  - Urticaria [Unknown]
  - Rash [Unknown]

NARRATIVE: CASE EVENT DATE: 20230101
